FAERS Safety Report 5531826-9 (Version None)
Quarter: 2007Q4

REPORT INFORMATION
  Report Type: 
  Country: None (occurrence: None)
  Receive Date: 20071128
  Receipt Date: 20071113
  Transmission Date: 20080405
  Serious: No
  Sender: FDA-Public Use
  Company Number: 110

PATIENT
  Sex: Female

DRUGS (3)
  1. COLCHICINE TABLETS, 0.6 MG [Suspect]
     Indication: GOUT
     Dosage: TABLET, VARIABLE, ORAL
     Route: 048
     Dates: start: 20071106
  2. PREDNISONE [Concomitant]
  3. EYE DROP [Concomitant]

REACTIONS (3)
  - FATIGUE [None]
  - NAUSEA [None]
  - PAIN [None]
